FAERS Safety Report 6841006-2 (Version None)
Quarter: 2010Q3

REPORT INFORMATION
  Report Type: 
  Country: None (occurrence: None)
  Receive Date: 20100714
  Receipt Date: 20070621
  Transmission Date: 20110219
  Serious: No
  Sender: FDA-Public Use
  Company Number: US-PFIZER INC-2007052227

PATIENT
  Sex: Female
  Weight: 73.636 kg

DRUGS (10)
  1. CHANTIX [Suspect]
     Indication: SMOKING CESSATION THERAPY
     Dates: start: 20070101
  2. ESTRADIOL [Interacting]
     Route: 061
  3. PROGESTERONE [Interacting]
     Dosage: 1/2 TO 3/4 INCH
     Route: 061
  4. PROGESTERONE [Interacting]
     Route: 048
  5. NORCO [Concomitant]
  6. MORPHINE SULFATE [Concomitant]
  7. HYDROMORPHONE [Concomitant]
     Indication: PAINFUL RESPIRATION
  8. DEMEROL [Concomitant]
     Indication: MIGRAINE
     Dosage: 12.5MG - 25MG
  9. SERAX [Concomitant]
  10. ADVAIR DISKUS 100/50 [Concomitant]
     Indication: RESPIRATORY DISORDER

REACTIONS (3)
  - DRUG INTERACTION [None]
  - HEADACHE [None]
  - RASH [None]
